FAERS Safety Report 7778061-1 (Version None)
Quarter: 2011Q3

REPORT INFORMATION
  Report Type: 
  Country: None (occurrence: None)
  Receive Date: 20110926
  Receipt Date: 20110920
  Transmission Date: 20111222
  Serious: Yes (Hospitalization, Other)
  Sender: FDA-Public Use
  Company Number: US-BAYER-2011-043512

PATIENT
  Age: 28 Year
  Sex: Female

DRUGS (2)
  1. BETAFERON [Suspect]
     Indication: MULTIPLE SCLEROSIS
     Dosage: 8 MIU, QOD
     Route: 058
     Dates: start: 20110218, end: 20110515
  2. ACETAMINOPHEN [Suspect]

REACTIONS (5)
  - MULTIPLE SCLEROSIS [None]
  - PYREXIA [None]
  - MICTURITION DISORDER [None]
  - MENINGITIS VIRAL [None]
  - LIVER INJURY [None]
